FAERS Safety Report 5426323-5 (Version None)
Quarter: 2007Q3

REPORT INFORMATION
  Report Type: 
  Country: None (occurrence: None)
  Receive Date: 20070827
  Receipt Date: 20070822
  Transmission Date: 20080115
  Serious: Yes (Death)
  Sender: FDA-Public Use
  Company Number: HQWYE761222AUG07

PATIENT

DRUGS (1)
  1. VENLAFAXIINE HCL [Suspect]
     Dosage: SELF POISONING DOSE UNSPECIFIED

REACTIONS (1)
  - POISONING DELIBERATE [None]
